FAERS Safety Report 5709030-0 (Version None)
Quarter: 2008Q2

REPORT INFORMATION
  Report Type: 
  Country: None (occurrence: None)
  Receive Date: 20080416
  Receipt Date: 20080416
  Transmission Date: 20081010
  Serious: Yes (Death)
  Sender: FDA-Public Use
  Company Number: None

PATIENT
  Sex: Female
  Weight: 70.3075 kg

DRUGS (3)
  1. DOCETAXEL [Suspect]
     Indication: PANCREATIC CARCINOMA METASTATIC
     Dosage: DAY 1+8, 28 DAY CYCLE
     Dates: start: 20080121, end: 20080407
  2. GEMCITABINE [Suspect]
     Indication: PANCREATIC CARCINOMA METASTATIC
     Dosage: DAY8+15
     Dates: start: 20080121, end: 20080407
  3. CAPECITABINE, 625MG/M2 [Suspect]
     Indication: PANCREATIC CARCINOMA METASTATIC
     Dosage: DAY8-21
     Dates: start: 20080121, end: 20080407

REACTIONS (2)
  - PERFORMANCE STATUS DECREASED [None]
  - SUDDEN DEATH [None]
